APPROVED DRUG PRODUCT: HYDROCODONE BITARTRATE AND ACETAMINOPHEN
Active Ingredient: ACETAMINOPHEN; HYDROCODONE BITARTRATE
Strength: 300MG;5MG
Dosage Form/Route: TABLET;ORAL
Application: A206470 | Product #001
Applicant: ACTAVIS LABORATORIES FL INC
Approved: Jun 2, 2016 | RLD: No | RS: No | Type: DISCN